FAERS Safety Report 7155794-1 (Version None)
Quarter: 2010Q4

REPORT INFORMATION
  Report Type: 
  Country: None (occurrence: None)
  Receive Date: 20101214
  Receipt Date: 20101213
  Transmission Date: 20110411
  Serious: Yes (Death)
  Sender: FDA-Public Use
  Company Number: CA-B.I. PHARMACEUTICALS,INC./RIDGEFIELD-2010-CN-00753CN

PATIENT

DRUGS (1)
  1. CATAPRES [Suspect]
     Indication: PAIN MANAGEMENT

REACTIONS (1)
  - DEATH [None]
